FAERS Safety Report 14670857 (Version 1)
Quarter: 2018Q1

REPORT INFORMATION
  Report Type: Spontaneous
  Country: US (occurrence: US)
  Receive Date: 20180321
  Receipt Date: 20180321
  Transmission Date: 20180509
  Serious: No
  Sender: FDA-Public Use
  Company Number: None

PATIENT
  Age: 48 Year
  Sex: Male

DRUGS (1)
  1. VOSEVI [Suspect]
     Active Substance: SOFOSBUVIR\VELPATASVIR\VOXILAPREVIR
     Route: 048
     Dates: start: 20180310

REACTIONS (5)
  - Anal erosion [None]
  - Nausea [None]
  - Diarrhoea [None]
  - Abdominal pain [None]
  - Rectal haemorrhage [None]

NARRATIVE: CASE EVENT DATE: 20180321
